FAERS Safety Report 7276718-2 (Version None)
Quarter: 2011Q1

REPORT INFORMATION
  Report Type: 
  Country: None (occurrence: None)
  Receive Date: 20110204
  Receipt Date: 20110126
  Transmission Date: 20110831
  Serious: Yes (Hospitalization)
  Sender: FDA-Public Use
  Company Number: US-ASTRAZENECA-2011SE04348

PATIENT
  Age: 70 Year
  Sex: Male

DRUGS (5)
  1. SIMVASTATIN [Concomitant]
  2. LISINOPRIL [Concomitant]
  3. DEPAKOTE [Concomitant]
  4. PLAVIX [Concomitant]
  5. SEROQUEL XR [Suspect]
     Route: 048
     Dates: start: 20110120, end: 20110121

REACTIONS (6)
  - DYSTONIA [None]
  - DISORIENTATION [None]
  - DIZZINESS [None]
  - MUSCLE RIGIDITY [None]
  - CONFUSIONAL STATE [None]
  - PYREXIA [None]
